FAERS Safety Report 25797447 (Version 1)
Quarter: 2025Q3

REPORT INFORMATION
  Report Type: Spontaneous
  Country: US (occurrence: US)
  Receive Date: 20250912
  Receipt Date: 20250912
  Transmission Date: 20251020
  Serious: No
  Sender: MAYNE
  Company Number: US-MAYNE PHARMA-2025MYN000528

PATIENT

DRUGS (1)
  1. SOLTAMOX [Suspect]
     Active Substance: TAMOXIFEN CITRATE
     Indication: Product used for unknown indication
     Route: 065

REACTIONS (3)
  - Oestrogen deficiency [Unknown]
  - Osteoporosis [Unknown]
  - Pain [Unknown]
